FAERS Safety Report 8532837-1 (Version None)
Quarter: 2012Q3

REPORT INFORMATION
  Report Type: 
  Country: None (occurrence: None)
  Receive Date: 20120724
  Receipt Date: 20120720
  Transmission Date: 20120928
  Serious: Yes (Other)
  Sender: FDA-Public Use
  Company Number: PH-EISAI INC-E2090-02222-SPO-PH

PATIENT
  Age: 12 Year
  Sex: Male
  Weight: 14 kg

DRUGS (6)
  1. CARBAMAZEPINE [Interacting]
     Dosage: 200 MG
     Route: 048
     Dates: start: 20120201
  2. ZONEGRAN [Interacting]
     Route: 048
     Dates: start: 20120619, end: 20120621
  3. VALPROIC ACID [Interacting]
     Dosage: 125 MG
     Route: 048
     Dates: start: 20120201
  4. ZONEGRAN [Suspect]
     Route: 048
     Dates: start: 20120613, end: 20120618
  5. LEVETIRACETAM [Interacting]
     Dosage: 250 MG
     Route: 048
     Dates: start: 20120101
  6. CLONAZEPAM [Interacting]
     Dosage: 0.5 MG
     Route: 048
     Dates: start: 20120201

REACTIONS (3)
  - DRUG INTERACTION [None]
  - PSYCHOMOTOR HYPERACTIVITY [None]
  - CRYING [None]
